FAERS Safety Report 13075960 (Version 1)
Quarter: 2016Q4

REPORT INFORMATION
  Report Type: Spontaneous
  Country: US (occurrence: US)
  Receive Date: 20161229
  Receipt Date: 20161229
  Transmission Date: 20170207
  Serious: Yes (Hospitalization)
  Sender: FDA-Public Use
  Company Number: None

PATIENT
  Age: 49 Year
  Sex: Female
  Weight: 61 kg

DRUGS (1)
  1. XELODA [Suspect]
     Active Substance: CAPECITABINE
     Dates: end: 20161006

REACTIONS (13)
  - Nausea [None]
  - Vomiting [None]
  - Gallbladder oedema [None]
  - Ileus [None]
  - Abdominal pain lower [None]
  - Abdominal distension [None]
  - Cholelithiasis [None]
  - Cholecystitis [None]
  - Haemangioma [None]
  - Infarction [None]
  - Abdominal wall haematoma [None]
  - Gallbladder enlargement [None]
  - Splenic infarction [None]

NARRATIVE: CASE EVENT DATE: 20161214
